FAERS Safety Report 20290407 (Version 1)
Quarter: 2022Q1

REPORT INFORMATION
  Report Type: Spontaneous
  Country: US (occurrence: US)
  Receive Date: 20220104
  Receipt Date: 20220104
  Transmission Date: 20220423
  Serious: No
  Sender: FDA-Public Use
  Company Number: US-GLENMARK PHARMACEUTICALS-2021GMK068757

PATIENT

DRUGS (1)
  1. ALYACEN 1/35 [Suspect]
     Active Substance: ETHINYL ESTRADIOL\NORETHINDRONE
     Indication: Contraception
     Dosage: 1 DOSAGE FORM, AM (ONCE A DAY IN THE MORNING)
     Route: 048

REACTIONS (3)
  - Expired product administered [Unknown]
  - Product dispensing error [Unknown]
  - No adverse event [Unknown]
